FAERS Safety Report 6420972-3 (Version None)
Quarter: 2009Q4

REPORT INFORMATION
  Report Type: 
  Country: None (occurrence: None)
  Receive Date: 20091030
  Receipt Date: 20091019
  Transmission Date: 20100525
  Serious: Yes (Other)
  Sender: FDA-Public Use
  Company Number: US-ROCHE-656880

PATIENT
  Age: 42 Year
  Sex: Female

DRUGS (1)
  1. CELLCEPT [Suspect]
     Indication: NEPHROTIC SYNDROME
     Route: 065
     Dates: start: 20080901, end: 20090701

REACTIONS (3)
  - AMNESIA [None]
  - BLINDNESS [None]
  - DYSARTHRIA [None]
